FAERS Safety Report 8716260 (Version 6)
Quarter: 2014Q2

REPORT INFORMATION
  Report Type: Report from Study
  Country: US (occurrence: US)
  Receive Date: 20120810
  Receipt Date: 20140627
  Transmission Date: 20141212
  Serious: Yes (Hospitalization, Other)
  Sender: FDA-Public Use
  Company Number: US-009507513-1208USA000642

PATIENT
  Age: 55 Year
  Sex: Male
  Weight: 76.7 kg

DRUGS (5)
  1. SIMVASTATIN [Suspect]
     Indication: ACUTE CORONARY SYNDROME
     Dosage: 40 MG, QD
     Route: 048
     Dates: start: 20070804
  2. ASPIRIN [Concomitant]
     Dosage: DAILY DOSE: 162 MG
     Route: 048
     Dates: start: 20120718
  3. METOPROLOL [Concomitant]
     Dosage: DAILY DOSE: 50 MG
     Route: 048
     Dates: start: 20070806
  4. CLOPIDOGREL [Concomitant]
     Dosage: DAILY DOSE: 75 MG
     Route: 048
     Dates: start: 20070806
  5. RAMIPRIL [Concomitant]
     Dosage: DAILY DOSE: 5 MG
     Route: 048
     Dates: start: 20100721

REACTIONS (6)
  - Mesenteric neoplasm [Not Recovered/Not Resolved]
  - Pleural effusion [Recovered/Resolved]
  - Pyelonephritis acute [Recovered/Resolved]
  - Bacteraemia [Recovered/Resolved]
  - Disseminated intravascular coagulation [Recovered/Resolved]
  - Endocarditis bacterial [Recovered/Resolved]
